FAERS Safety Report 20551795 (Version 1)
Quarter: 2022Q1

REPORT INFORMATION
  Report Type: Spontaneous
  Country: JP (occurrence: JP)
  Receive Date: 20220304
  Receipt Date: 20220304
  Transmission Date: 20220423
  Serious: Yes (Death, Other)
  Sender: FDA-Public Use
  Company Number: JP-PFIZER INC-202200322135

PATIENT
  Age: 63 Year
  Sex: Male
  Weight: 59 kg

DRUGS (8)
  1. VFEND [Suspect]
     Active Substance: VORICONAZOLE
     Indication: Candida infection
     Dosage: 100 MG, 1X/DAY
     Route: 042
     Dates: start: 20220202, end: 20220216
  2. VEMLIDY [Concomitant]
     Active Substance: TENOFOVIR ALAFENAMIDE FUMARATE
     Dosage: UNK
     Route: 048
  3. PIPERACILLIN SODIUM\TAZOBACTAM SODIUM [Concomitant]
     Active Substance: PIPERACILLIN SODIUM\TAZOBACTAM SODIUM
     Dosage: UNK
     Route: 042
  4. NOREPINEPHRINE [Concomitant]
     Active Substance: NOREPINEPHRINE
     Dosage: UNK
     Route: 042
  5. BROMHEXINE HYDROCHLORIDE [Concomitant]
     Active Substance: BROMHEXINE HYDROCHLORIDE
     Dosage: UNK
     Route: 042
  6. SOLU-MEDROL [Concomitant]
     Active Substance: METHYLPREDNISOLONE SODIUM SUCCINATE
     Dosage: UNK
  7. NAFAMOSTAT MESYLATE [Concomitant]
     Active Substance: NAFAMOSTAT MESYLATE
     Dosage: UNK
  8. AMBISOME [Concomitant]
     Active Substance: AMPHOTERICIN B
     Dosage: UNK
     Route: 042

REACTIONS (5)
  - Electrocardiogram QT prolonged [Fatal]
  - Supraventricular extrasystoles [Unknown]
  - Arrhythmia [Unknown]
  - Off label use [Unknown]
  - Contraindicated product administered [Unknown]

NARRATIVE: CASE EVENT DATE: 20220202
